FAERS Safety Report 4734606-7 (Version None)
Quarter: 2005Q3

REPORT INFORMATION
  Report Type: 
  Country: None (occurrence: None)
  Receive Date: 20050804
  Receipt Date: 20050727
  Transmission Date: 20060218
  Serious: Yes (Hospitalization)
  Sender: FDA-Public Use
  Company Number: 2005CG01318

PATIENT
  Age: 23 Year
  Sex: Female
  Weight: 39 kg

DRUGS (6)
  1. OMEPRAZOLE [Suspect]
     Route: 048
  2. LEVOTHYROX [Suspect]
     Route: 048
  3. RENAGEL [Suspect]
     Route: 048
  4. PEGASYS [Suspect]
     Route: 058
     Dates: start: 20050104, end: 20050325
  5. COPEGUS [Suspect]
     Route: 048
     Dates: start: 20050104, end: 20050325
  6. HYDROCORTISONE [Suspect]
     Route: 048

REACTIONS (15)
  - BLOOD PRESSURE DIASTOLIC DECREASED [None]
  - CARDIAC MURMUR [None]
  - CHILLS [None]
  - DYSPNOEA [None]
  - EAR INFECTION [None]
  - ENDOCARDITIS [None]
  - EOSINOPHILIA [None]
  - EPISTAXIS [None]
  - FUNGAL SKIN INFECTION [None]
  - ICHTHYOSIS [None]
  - LYMPHADENOPATHY [None]
  - LYMPHOPENIA [None]
  - PYREXIA [None]
  - SINUS TACHYCARDIA [None]
  - STAPHYLOCOCCAL INFECTION [None]
